FAERS Safety Report 7145877-4 (Version None)
Quarter: 2010Q4

REPORT INFORMATION
  Report Type: 
  Country: None (occurrence: None)
  Receive Date: 20101208
  Receipt Date: 20101203
  Transmission Date: 20110411
  Serious: Yes (Hospitalization)
  Sender: FDA-Public Use
  Company Number: B0687505A

PATIENT
  Sex: Male
  Weight: 45 kg

DRUGS (5)
  1. SERETIDE [Suspect]
     Indication: EMPHYSEMA
     Dosage: 500MCG PER DAY
     Route: 055
     Dates: start: 20091005
  2. SINGULAIR [Concomitant]
     Indication: ASTHMA
     Dosage: 10MG PER DAY
     Route: 048
  3. THEO-DUR [Concomitant]
     Indication: EMPHYSEMA
     Dosage: 200MG PER DAY
     Route: 048
  4. SPIRIVA [Concomitant]
     Indication: EMPHYSEMA
     Dosage: 18MCG PER DAY
     Route: 055
     Dates: end: 20100704
  5. SPIRIVA [Concomitant]
     Dosage: 5MCG PER DAY
     Route: 055
     Dates: start: 20100705

REACTIONS (1)
  - BRONCHITIS [None]
